FAERS Safety Report 6631097-6 (Version None)
Quarter: 2010Q1

REPORT INFORMATION
  Report Type: 
  Country: None (occurrence: None)
  Receive Date: 20100309
  Receipt Date: 20100222
  Transmission Date: 20100710
  Serious: Yes (Other)
  Sender: FDA-Public Use
  Company Number: MIN-00578

PATIENT
  Age: 20 Year
  Sex: Female

DRUGS (6)
  1. MINOCYCLINE HCL [Suspect]
     Indication: ACNE
     Dosage: 50 TO 100MG, BID, ORAL
     Route: 048
  2. TRETINOIN [Suspect]
     Dosage: TOPICAL
     Route: 061
  3. BENZAMYCIN [Suspect]
  4. BENZOYL PEROXIDE 6% GEL [Suspect]
  5. ORAL CONTRACEPTIVE PILLS (TRIPHASIC ETHINYL ESTRADIOL/NORGESTIMATE) [Concomitant]
  6. ALBUTEROL SULATE [Concomitant]

REACTIONS (3)
  - CYST [None]
  - HIRSUTISM [None]
  - POLYARTERITIS NODOSA [None]
